FAERS Safety Report 4266117-X (Version None)
Quarter: 2004Q1

REPORT INFORMATION
  Report Type: 
  Country: None (occurrence: None)
  Receive Date: 20040106
  Receipt Date: 20031224
  Transmission Date: 20041129
  Serious: Yes (Other)
  Sender: FDA-Public Use
  Company Number: CN-JNJFOC-20031204887

PATIENT
  Age: 44 Year
  Sex: Female

DRUGS (4)
  1. SPORANOX [Suspect]
     Indication: ONYCHOMYCOSIS
     Dosage: 200 MG, 1 IN 1 DAY, ORAL
     Route: 048
     Dates: start: 20031124, end: 20031130
  2. SPORANOX [Suspect]
     Indication: ONYCHOMYCOSIS
     Dosage: 200 MG, 1 IN 1 DAY, ORAL
     Route: 048
     Dates: start: 20031220, end: 20031220
  3. VIT C (ASCORBIC ACID) [Concomitant]
  4. VIT B (VITAMIN B NOS) [Concomitant]

REACTIONS (8)
  - ABDOMINAL PAIN [None]
  - ARTHRALGIA [None]
  - DRUG TOXICITY [None]
  - GENERALISED OEDEMA [None]
  - HEADACHE [None]
  - PAIN [None]
  - PRURITUS GENERALISED [None]
  - VAGINAL HAEMORRHAGE [None]
